FAERS Safety Report 11638682 (Version 1)
Quarter: 2015Q4

REPORT INFORMATION
  Report Type: Report from Study
  Country: IT (occurrence: IT)
  Receive Date: 20151016
  Receipt Date: 20151016
  Transmission Date: 20160304
  Serious: Yes (Death, Other)
  Sender: FDA-Public Use
  Company Number: IT-BAXTER-2015BAX056398

PATIENT

DRUGS (45)
  1. ENDOXAN BAXTER [Suspect]
     Active Substance: CYCLOPHOSPHAMIDE
     Dosage: REINDUCTION
     Route: 042
  2. ASPARAGINASE [Suspect]
     Active Substance: ASPARAGINASE
     Indication: NON-HODGKIN^S LYMPHOMA
     Dosage: 5000 UNIT/M^2/DAY
     Route: 030
  3. METHOTREXATE [Suspect]
     Active Substance: METHOTREXATE
     Route: 048
  4. METHOTREXATE [Suspect]
     Active Substance: METHOTREXATE
     Dosage: MAINTENANCE PART 1
     Route: 037
  5. CYTOSINE ARABINOSIDE [Suspect]
     Active Substance: CYTARABINE
     Dosage: CONSOLIDATION
     Route: 037
  6. PREDNISOLONE. [Suspect]
     Active Substance: PREDNISOLONE
     Dosage: CONSOLIDATION
     Route: 037
  7. L-LEUCOVORIN [Suspect]
     Active Substance: LEUCOVORIN
     Dosage: CONSOLIDATION
     Route: 042
  8. ENDOXAN BAXTER [Suspect]
     Active Substance: CYCLOPHOSPHAMIDE
     Indication: NON-HODGKIN^S LYMPHOMA
     Route: 042
  9. ENDOXAN BAXTER [Suspect]
     Active Substance: CYCLOPHOSPHAMIDE
     Route: 042
  10. CYTOSINE ARABINOSIDE [Suspect]
     Active Substance: CYTARABINE
     Indication: NON-HODGKIN^S LYMPHOMA
     Dosage: INDUCTION
     Route: 037
  11. PREDNISOLONE. [Suspect]
     Active Substance: PREDNISOLONE
     Indication: NON-HODGKIN^S LYMPHOMA
     Dosage: INDUCTION
     Route: 037
  12. ETOPOSIDE. [Suspect]
     Active Substance: ETOPOSIDE
     Dosage: MAINTAINENCE PART 1
     Route: 042
  13. METHOTREXATE [Suspect]
     Active Substance: METHOTREXATE
     Dosage: 3 G/M2/DAY IN 24HR (HIGH DOSE) CONSOLIDATION
     Route: 042
  14. CYTOSINE ARABINOSIDE [Suspect]
     Active Substance: CYTARABINE
     Dosage: REINDUCTION
     Route: 042
  15. CYTOSINE ARABINOSIDE [Suspect]
     Active Substance: CYTARABINE
     Dosage: MAINTAINENCE PART 1
     Route: 042
  16. THIOGUANINE [Suspect]
     Active Substance: THIOGUANINE
     Indication: NON-HODGKIN^S LYMPHOMA
     Dosage: REINDUCTION
     Route: 048
  17. PREDNISONE. [Suspect]
     Active Substance: PREDNISONE
     Dosage: MAINTENANCE PART 2
     Route: 048
  18. METHOTREXATE [Suspect]
     Active Substance: METHOTREXATE
     Dosage: MAINTENANCE PART II
     Route: 030
  19. CYTOSINE ARABINOSIDE [Suspect]
     Active Substance: CYTARABINE
     Dosage: REINDUCTION
     Route: 037
  20. CYTOSINE ARABINOSIDE [Suspect]
     Active Substance: CYTARABINE
     Dosage: MAINTENANCE PART 1
     Route: 037
  21. MERCAPTOPURINE. [Suspect]
     Active Substance: MERCAPTOPURINE
     Indication: NON-HODGKIN^S LYMPHOMA
     Dosage: CONSOLIDATION
     Route: 048
  22. DOXORUBICIN [Suspect]
     Active Substance: DOXORUBICIN
     Indication: NON-HODGKIN^S LYMPHOMA
     Dosage: REINDUCTION
     Route: 042
  23. L-LEUCOVORIN [Suspect]
     Active Substance: LEUCOVORIN
     Dosage: REINDUCTION
     Route: 042
  24. ASPARAGINASE [Suspect]
     Active Substance: ASPARAGINASE
     Dosage: 5000 U/M^2/DAY (REINDUCTION)
     Route: 030
  25. VINCRISTINE [Suspect]
     Active Substance: VINCRISTINE
     Indication: NON-HODGKIN^S LYMPHOMA
     Route: 042
  26. VINCRISTINE [Suspect]
     Active Substance: VINCRISTINE
     Dosage: REINDUCTION
     Route: 042
  27. CYTOSINE ARABINOSIDE [Suspect]
     Active Substance: CYTARABINE
     Dosage: 3 G/M2 EVERY 12HOUR IN 3 HOUR- HIGH DOSE
     Route: 042
  28. DEXAMETHASONE. [Suspect]
     Active Substance: DEXAMETHASONE
     Indication: NON-HODGKIN^S LYMPHOMA
     Dosage: REINDUCTION
     Route: 065
  29. PREDNISONE. [Suspect]
     Active Substance: PREDNISONE
     Indication: NON-HODGKIN^S LYMPHOMA
     Dosage: INDUCTION
     Route: 048
  30. VINCRISTINE [Suspect]
     Active Substance: VINCRISTINE
     Dosage: MAINTENANCE PART 1
     Route: 042
  31. METHOTREXATE [Suspect]
     Active Substance: METHOTREXATE
     Indication: NON-HODGKIN^S LYMPHOMA
     Dosage: 5 G/M2 IN 24 HOURS (HIGH DOSE) INDUCTION
     Route: 042
  32. PREDNISOLONE. [Suspect]
     Active Substance: PREDNISOLONE
     Dosage: MAINTENANCE PART 1
     Route: 037
  33. CYTOSINE ARABINOSIDE [Suspect]
     Active Substance: CYTARABINE
     Dosage: CONSOLIDATION
     Route: 042
  34. PREDNISOLONE. [Suspect]
     Active Substance: PREDNISOLONE
     Dosage: REINDUCTION
     Route: 037
  35. MERCAPTOPURINE. [Suspect]
     Active Substance: MERCAPTOPURINE
     Dosage: MAINTENANCE PART 2
     Route: 048
  36. ETOPOSIDE. [Suspect]
     Active Substance: ETOPOSIDE
     Indication: NON-HODGKIN^S LYMPHOMA
     Dosage: CONSOLIDATION
     Route: 042
  37. L-LEUCOVORIN [Suspect]
     Active Substance: LEUCOVORIN
     Dosage: INDUCTION
     Route: 042
  38. ENDOXAN BAXTER [Suspect]
     Active Substance: CYCLOPHOSPHAMIDE
     Dosage: MAINTENANCE PART 1
     Route: 042
  39. DAUNORUBICIN [Suspect]
     Active Substance: DAUNORUBICIN
     Indication: NON-HODGKIN^S LYMPHOMA
     Route: 042
  40. METHOTREXATE [Suspect]
     Active Substance: METHOTREXATE
     Dosage: INDUCTION
     Route: 037
  41. METHOTREXATE [Suspect]
     Active Substance: METHOTREXATE
     Dosage: CONSOLIDATION
     Route: 037
  42. METHOTREXATE [Suspect]
     Active Substance: METHOTREXATE
     Dosage: 3 G/M2/DAY IN 24HR (HIGH DOSE) REINDUCTION
     Route: 042
  43. METHOTREXATE [Suspect]
     Active Substance: METHOTREXATE
     Dosage: REINDUCTION
     Route: 037
  44. THIOGUANINE [Suspect]
     Active Substance: THIOGUANINE
     Dosage: MAINTAINENCE PART 1
     Route: 048
  45. L-LEUCOVORIN [Suspect]
     Active Substance: LEUCOVORIN
     Indication: CHEMOTHERAPY TOXICITY ATTENUATION
     Dosage: INDUCTION
     Route: 042

REACTIONS (2)
  - Non-Hodgkin^s lymphoma recurrent [Unknown]
  - Multi-organ failure [Fatal]
